FAERS Safety Report 18681149 (Version 2)
Quarter: 2021Q4

REPORT INFORMATION
  Report Type: Report from Study
  Country: US (occurrence: US)
  Receive Date: 20201229
  Receipt Date: 20211229
  Transmission Date: 20220303
  Serious: No
  Sender: FDA-Public Use
  Company Number: US-CLOVIS ONCOLOGY-CLO-2020-002321

PATIENT
  Age: 56 Year
  Sex: Female

DRUGS (1)
  1. RUBRACA [Suspect]
     Active Substance: RUCAPARIB CAMSYLATE
     Indication: Ovarian cancer
     Dosage: 600 MILLIGRAM, BID
     Route: 048
     Dates: start: 20201203, end: 202012

REACTIONS (7)
  - Dry mouth [Unknown]
  - Anxiety [Unknown]
  - Illness [Not Recovered/Not Resolved]
  - Adverse event [Unknown]
  - Depression [Unknown]
  - Nausea [Unknown]
  - Taste disorder [Unknown]

NARRATIVE: CASE EVENT DATE: 20201201
